FAERS Safety Report 17616773 (Version 2)
Quarter: 2020Q2

REPORT INFORMATION
  Report Type: Report from Study
  Country: IL (occurrence: IL)
  Receive Date: 20200402
  Receipt Date: 20200403
  Transmission Date: 20200713
  Serious: Yes (Hospitalization)
  Sender: FDA-Public Use
  Company Number: IL-ABBVIE-20K-082-3343167-00

PATIENT
  Age: 68 Year
  Sex: Male
  Weight: 48 kg

DRUGS (10)
  1. VENETOCLAX. [Suspect]
     Active Substance: VENETOCLAX
     Dosage: RAMP UP
     Route: 048
     Dates: start: 20200311, end: 202003
  2. CREON [Concomitant]
     Active Substance: PANCRELIPASE AMYLASE\PANCRELIPASE LIPASE\PANCRELIPASE PROTEASE
     Indication: PRODUCT USED FOR UNKNOWN INDICATION
  3. EXFORGE [Concomitant]
     Active Substance: AMLODIPINE BESYLATE\VALSARTAN
     Indication: HYPERTENSION
  4. ALLORIL [Concomitant]
     Active Substance: ALLOPURINOL
     Indication: PROPHYLAXIS
  5. VENETOCLAX. [Suspect]
     Active Substance: VENETOCLAX
     Indication: ACUTE MYELOID LEUKAEMIA
     Dosage: RAMP UP
     Route: 048
     Dates: start: 20191210, end: 20200209
  6. NEXIUM [Concomitant]
     Active Substance: ESOMEPRAZOLE MAGNESIUM
     Indication: PRODUCT USED FOR UNKNOWN INDICATION
  7. VENETOCLAX. [Suspect]
     Active Substance: VENETOCLAX
     Route: 048
     Dates: start: 202003
  8. NORMALOL [Concomitant]
     Active Substance: ATENOLOL
     Indication: HYPERTENSION
  9. BROTIZOLAM [Concomitant]
     Active Substance: BROTIZOLAM
     Indication: PRODUCT USED FOR UNKNOWN INDICATION
  10. AZACITIDINE. [Suspect]
     Active Substance: AZACITIDINE
     Indication: ACUTE MYELOID LEUKAEMIA
     Dosage: CYCLE 1
     Route: 058
     Dates: start: 20191215, end: 20191223

REACTIONS (1)
  - Cytopenia [Not Recovered/Not Resolved]

NARRATIVE: CASE EVENT DATE: 20191210
